FAERS Safety Report 4761400-3 (Version None)
Quarter: 2005Q3

REPORT INFORMATION
  Report Type: 
  Country: None (occurrence: None)
  Receive Date: 20050902
  Receipt Date: 20050902
  Transmission Date: 20060218
  Serious: No
  Sender: FDA-Public Use
  Company Number: None

PATIENT
  Age: 17 Year
  Sex: Female
  Weight: 50.8029 kg

DRUGS (1)
  1. ZOLOFT [Suspect]
     Indication: ANXIETY
     Dosage: 50 MG    ONCE DAILY   PO
     Route: 048
     Dates: start: 20050831, end: 20050901

REACTIONS (9)
  - ABNORMAL BEHAVIOUR [None]
  - CONFUSIONAL STATE [None]
  - DYSARTHRIA [None]
  - HEADACHE [None]
  - IMPULSIVE BEHAVIOUR [None]
  - MALAISE [None]
  - MUSCLE TWITCHING [None]
  - TREMOR [None]
  - VOMITING [None]
